FAERS Safety Report 8763324 (Version 2)
Quarter: 2012Q4

REPORT INFORMATION
  Report Type: 
  Country: US (occurrence: US)
  Receive Date: 20120830
  Receipt Date: 20121015
  Transmission Date: 20130627
  Serious: No
  Sender: FDA-Public Use
  Company Number: US-PFIZER INC-2012210647

PATIENT
  Age: 73 Year
  Sex: Male

DRUGS (1)
  1. SUTENT [Suspect]
     Indication: GASTROINTESTINAL CARCINOMA
     Dosage: 50 mg, 1x/day
     Route: 048
     Dates: start: 20120815

REACTIONS (2)
  - Neuropathy peripheral [Unknown]
  - Constipation [Unknown]
